FAERS Safety Report 13414208 (Version 2)
Quarter: 2017Q2

REPORT INFORMATION
  Report Type: Spontaneous
  Country: FR (occurrence: FR)
  Receive Date: 20170407
  Receipt Date: 20170503
  Transmission Date: 20170830
  Serious: Yes (Life-Threatening, Hospitalization)
  Sender: FDA-Public Use
  Company Number: FR-PFIZER INC-2017145791

PATIENT
  Age: 34 Year
  Sex: Female

DRUGS (7)
  1. FLUOXETINE ARROW [Concomitant]
     Active Substance: FLUOXETINE HYDROCHLORIDE
     Dosage: 1 DF, 1X/DAY
     Route: 048
     Dates: start: 20170204, end: 20170303
  2. CELLCEPT [Suspect]
     Active Substance: MYCOPHENOLATE MOFETIL\MYCOPHENOLATE MOFETIL HYDROCHLORIDE
     Indication: PROPHYLAXIS AGAINST TRANSPLANT REJECTION
     Dosage: 250 MG, 1X/DAY
     Route: 048
     Dates: start: 2017, end: 20170307
  3. RAPAMUNE [Suspect]
     Active Substance: SIROLIMUS
     Dosage: 1 MG, 1X/DAY
     Route: 048
     Dates: start: 20170220, end: 20170306
  4. ZELITREX [Suspect]
     Active Substance: VALACYCLOVIR HYDROCHLORIDE
     Dosage: UNK
     Dates: start: 20170226, end: 20170302
  5. ZELITREX [Suspect]
     Active Substance: VALACYCLOVIR HYDROCHLORIDE
     Indication: INFECTION PROPHYLAXIS
     Dosage: 500 MG, 1X/DAY
     Route: 048
     Dates: start: 2017, end: 20170222
  6. BACTRIM [Suspect]
     Active Substance: SULFAMETHOXAZOLE\TRIMETHOPRIM
     Dosage: 1 DF, 1X/DAY
     Route: 048
     Dates: start: 20170214, end: 20170223
  7. VALGANCICLOVIR MYLAN [Suspect]
     Active Substance: VALGANCICLOVIR
     Indication: INFECTION PROPHYLAXIS
     Dosage: 450 MG, 2X/DAY
     Route: 048
     Dates: start: 20170218, end: 20170306

REACTIONS (1)
  - Agranulocytosis [Recovered/Resolved]

NARRATIVE: CASE EVENT DATE: 20170305
